FAERS Safety Report 12932581 (Version 1)
Quarter: 2016Q4

REPORT INFORMATION
  Report Type: Spontaneous
  Country: US (occurrence: US)
  Receive Date: 20161111
  Receipt Date: 20161111
  Transmission Date: 20170207
  Serious: No
  Sender: FDA-Public Use
  Company Number: US-TEVA-704035ACC

PATIENT
  Age: 17 Year
  Sex: Female
  Weight: 63.56 kg

DRUGS (1)
  1. PLAN B ONE-STEP [Suspect]
     Active Substance: LEVONORGESTREL
     Indication: POST COITAL CONTRACEPTION
     Dates: start: 20160925, end: 20160925

REACTIONS (8)
  - Nasopharyngitis [Recovered/Resolved]
  - Menstruation irregular [Recovered/Resolved]
  - Gastroenteritis viral [Recovered/Resolved]
  - Menstruation delayed [Recovered/Resolved]
  - Pyrexia [Recovered/Resolved]
  - Vaginal haemorrhage [Not Recovered/Not Resolved]
  - Breast tenderness [Recovered/Resolved]
  - Nausea [Unknown]

NARRATIVE: CASE EVENT DATE: 20160925
